FAERS Safety Report 9121024 (Version 2)
Quarter: 2013Q1

REPORT INFORMATION
  Report Type: Spontaneous
  Country: US (occurrence: US)
  Receive Date: 20130226
  Receipt Date: 20130304
  Transmission Date: 20140127
  Serious: No
  Sender: FDA-Public Use
  Company Number: US-UCBSA-078981

PATIENT
  Age: 49 Year
  Sex: Male
  Weight: 74.8 kg

DRUGS (4)
  1. CIMZIA [Suspect]
     Indication: CROHN^S DISEASE
     Dosage: DOSE: 400 MG
     Dates: start: 201209
  2. HUMIRA [Suspect]
     Dosage: 2 MONTHLY X 1 YEAR
     Dates: start: 2010, end: 201209
  3. LIALDA [Concomitant]
     Indication: CROHN^S DISEASE
  4. MERCAPTOPURINE [Concomitant]
     Indication: CROHN^S DISEASE

REACTIONS (1)
  - Periodontitis [Not Recovered/Not Resolved]
